FAERS Safety Report 4973386-7 (Version None)
Quarter: 2006Q2

REPORT INFORMATION
  Report Type: 
  Country: None (occurrence: None)
  Receive Date: 20060413
  Receipt Date: 20060413
  Transmission Date: 20061013
  Serious: No
  Sender: FDA-Public Use
  Company Number: None

PATIENT
  Sex: Female

DRUGS (2)
  1. RYNATUSS [Suspect]
  2. RYNATAN [Suspect]

REACTIONS (2)
  - INTERCEPTED MEDICATION ERROR [None]
  - MEDICATION ERROR [None]
